FAERS Safety Report 16867260 (Version 1)
Quarter: 2019Q4

REPORT INFORMATION
  Report Type: Spontaneous
  Country: US (occurrence: US)
  Receive Date: 20190929
  Receipt Date: 20190929
  Transmission Date: 20200122
  Serious: Yes (Other)
  Sender: FDA-Public Use
  Company Number: None

PATIENT
  Age: 24 Year
  Sex: Female
  Weight: 61.65 kg

DRUGS (1)
  1. REFRESH PLUS [Suspect]
     Active Substance: CARBOXYMETHYLCELLULOSE SODIUM
     Indication: DRY EYE
     Dosage: ?          QUANTITY:70 VIALS;?
     Route: 047
     Dates: start: 20190920, end: 20190927

REACTIONS (4)
  - Paraesthesia oral [None]
  - Lip pruritus [None]
  - Lip dry [None]
  - Lip swelling [None]

NARRATIVE: CASE EVENT DATE: 20190927
